FAERS Safety Report 11330549 (Version 1)
Quarter: 2015Q3

REPORT INFORMATION
  Report Type: Spontaneous
  Country: US (occurrence: US)
  Receive Date: 20150803
  Receipt Date: 20150803
  Transmission Date: 20151125
  Serious: No
  Sender: FDA-Public Use
  Company Number: US-TAKEDA-2015TUS004176

PATIENT
  Sex: Female

DRUGS (1)
  1. COLCRYS [Suspect]
     Active Substance: COLCHICINE
     Indication: PERICARDITIS
     Dosage: 0.6 MG, BID
     Route: 048

REACTIONS (2)
  - Product use issue [Not Recovered/Not Resolved]
  - No adverse event [Unknown]
